FAERS Safety Report 7907845-1 (Version None)
Quarter: 2011Q4

REPORT INFORMATION
  Report Type: 
  Country: None (occurrence: None)
  Receive Date: 20111110
  Receipt Date: 20111103
  Transmission Date: 20120403
  Serious: Yes (Other)
  Sender: FDA-Public Use
  Company Number: FR-PFIZER INC-2011147345

PATIENT
  Age: 75 Year
  Sex: Male

DRUGS (8)
  1. DOXAZOSIN MESYLATE [Suspect]
     Dosage: UNK
     Route: 048
     Dates: end: 20101128
  2. MEDIATOR [Suspect]
     Indication: OVERWEIGHT
     Dosage: 450 MG TOTAL DAILY (150 MG, 3X/DAY)
     Route: 048
     Dates: start: 20010101, end: 20090101
  3. ATORVASTATIN CALCIUM [Concomitant]
     Dosage: UNK
  4. PLAVIX [Concomitant]
  5. ATACAND [Concomitant]
  6. EQUANIL [Concomitant]
  7. AOTAL [Concomitant]
  8. DITROPAN [Concomitant]

REACTIONS (9)
  - BALANCE DISORDER [None]
  - CEREBRAL ATROPHY [None]
  - VERTIGO [None]
  - DYSPNOEA [None]
  - AORTIC CALCIFICATION [None]
  - ARTERIOSCLEROSIS [None]
  - AORTIC VALVE INCOMPETENCE [None]
  - FATIGUE [None]
  - CHOREA [None]
